FAERS Safety Report 13649406 (Version 5)
Quarter: 2018Q3

REPORT INFORMATION
  Report Type: Report from Study
  Country: GB (occurrence: GB)
  Receive Date: 20170613
  Receipt Date: 20180808
  Transmission Date: 20181010
  Serious: Yes (Hospitalization)
  Sender: FDA-Public Use
  Company Number: PHHO2017GB007784

PATIENT
  Age: 72 Year
  Sex: Male

DRUGS (3)
  1. WARFARIN [Concomitant]
     Active Substance: WARFARIN
     Indication: ATRIAL FIBRILLATION
     Dosage: UNK
     Route: 065
  2. ACZ885 [Suspect]
     Active Substance: CANAKINUMAB
     Indication: CARDIOVASCULAR EVENT PROPHYLAXIS
     Dosage: 150 MG, QUARTERLY
     Route: 058
  3. PLACEBO [Suspect]
     Active Substance: UNSPECIFIED INGREDIENT
     Indication: CARDIOVASCULAR EVENT PROPHYLAXIS
     Dosage: UNK
     Route: 058
     Dates: start: 19710119, end: 20170222

REACTIONS (1)
  - Dysuria [Recovered/Resolved]

NARRATIVE: CASE EVENT DATE: 20170427
